FAERS Safety Report 20389547 (Version 1)
Quarter: 2022Q1

REPORT INFORMATION
  Report Type: Spontaneous
  Country: GB (occurrence: GB)
  Receive Date: 20220128
  Receipt Date: 20220128
  Transmission Date: 20220423
  Serious: Yes (Other)
  Sender: FDA-Public Use
  Company Number: None

PATIENT
  Age: 57 Year
  Sex: Male
  Weight: 75 kg

DRUGS (3)
  1. PROPRANOLOL [Suspect]
     Active Substance: PROPRANOLOL HYDROCHLORIDE
     Indication: Anxiety
     Dosage: 20MG
     Route: 048
     Dates: start: 20220110, end: 20220110
  2. PAROXETINE HYDROCHLORIDE [Concomitant]
     Active Substance: PAROXETINE HYDROCHLORIDE
     Indication: Ill-defined disorder
  3. WARFARIN [Concomitant]
     Active Substance: WARFARIN
     Indication: Ill-defined disorder

REACTIONS (1)
  - Crying [Recovered/Resolved]

NARRATIVE: CASE EVENT DATE: 20220110
